FAERS Safety Report 9179074 (Version 1)
Quarter: 2013Q1

REPORT INFORMATION
  Report Type: Report from Study
  Country: US (occurrence: US)
  Receive Date: 20130321
  Receipt Date: 20130321
  Transmission Date: 20140127
  Serious: Yes (Hospitalization)
  Sender: FDA-Public Use
  Company Number: US-JNJFOC-20130310768

PATIENT
  Age: 3 Year
  Sex: Male

DRUGS (1)
  1. NUCYNTA [Suspect]
     Indication: ACCIDENTAL EXPOSURE TO PRODUCT
     Route: 048

REACTIONS (2)
  - Wrong drug administered [Recovered/Resolved]
  - Depressed level of consciousness [Recovered/Resolved]
